FAERS Safety Report 7950873-0 (Version None)
Quarter: 2011Q4

REPORT INFORMATION
  Report Type: 
  Country: None (occurrence: None)
  Receive Date: 20111201
  Receipt Date: 20111123
  Transmission Date: 20120403
  Serious: Yes (Hospitalization)
  Sender: FDA-Public Use
  Company Number: US-BIOGENIDEC-2011BI042668

PATIENT
  Sex: Female

DRUGS (3)
  1. AVONEX [Suspect]
     Route: 030
     Dates: start: 19970701
  2. AVONEX [Suspect]
     Indication: MULTIPLE SCLEROSIS
     Route: 030
  3. BACLOFEN [Concomitant]
     Indication: MULTIPLE SCLEROSIS

REACTIONS (13)
  - DEVICE RELATED INFECTION [None]
  - JOINT INJURY [None]
  - CHEST PAIN [None]
  - PAIN [None]
  - FALL [None]
  - SENSATION OF HEAVINESS [None]
  - DYSGRAPHIA [None]
  - ABASIA [None]
  - INFECTION [None]
  - FEELING ABNORMAL [None]
  - FATIGUE [None]
  - KIDNEY INFECTION [None]
  - CATHETER PLACEMENT [None]
